FAERS Safety Report 11441312 (Version 1)
Quarter: 2015Q3

REPORT INFORMATION
  Report Type: Spontaneous
  Country: US (occurrence: US)
  Receive Date: 20150821
  Receipt Date: 20150821
  Transmission Date: 20151125
  Serious: No
  Sender: FDA-Public Use
  Company Number: US-ELI_LILLY_AND_COMPANY-US200805004197

PATIENT
  Age: 47 Year
  Sex: Female

DRUGS (4)
  1. WELLBUTRIN XL [Concomitant]
     Active Substance: BUPROPION HYDROCHLORIDE
     Dosage: 300 MG, DAILY (1/D)
  2. BUSPAR [Concomitant]
     Active Substance: BUSPIRONE HYDROCHLORIDE
     Dosage: 15 MG, DAILY (1/D)
  3. AMBIEN [Concomitant]
     Active Substance: ZOLPIDEM TARTRATE
     Dosage: 10 MG, EACH EVENING
  4. CYMBALTA [Suspect]
     Active Substance: DULOXETINE HYDROCHLORIDE
     Dosage: 20 MG, DAILY (1/D)
     Dates: start: 20080401

REACTIONS (2)
  - Oropharyngeal pain [Unknown]
  - Throat irritation [Unknown]

NARRATIVE: CASE EVENT DATE: 2008
